FAERS Safety Report 12366586 (Version 1)
Quarter: 2016Q2

REPORT INFORMATION
  Report Type: Spontaneous
  Country: US (occurrence: US)
  Receive Date: 20160513
  Receipt Date: 20160513
  Transmission Date: 20160815
  Serious: Yes (Death, Hospitalization, Other)
  Sender: FDA-Public Use
  Company Number: US-009507513-1504USA010322

PATIENT
  Age: 57 Year
  Sex: Male
  Weight: 92.7 kg

DRUGS (18)
  1. CUBICIN [Suspect]
     Active Substance: DAPTOMYCIN
     Indication: ENDOCARDITIS
     Dosage: 6 MG/KG, Q24H
     Route: 042
     Dates: start: 20070228, end: 20070308
  2. GENTAMICIN. [Concomitant]
     Active Substance: GENTAMICIN
     Dosage: 590 MG, Q24H
     Dates: start: 20070315, end: 20070321
  3. REGLAN [Concomitant]
     Active Substance: METOCLOPRAMIDE HYDROCHLORIDE
     Dosage: 10 MG, Q8H
     Dates: start: 200704, end: 200704
  4. CEFDINIR. [Concomitant]
     Active Substance: CEFDINIR
     Dosage: UNK UNK, UNK
     Dates: start: 20070308, end: 20070312
  5. CASPOFUNGIN ACETATE [Concomitant]
     Active Substance: CASPOFUNGIN ACETATE
     Dosage: 50 MG, X1
     Route: 042
     Dates: start: 200704, end: 200704
  6. PANTOPRAZOLE [Concomitant]
     Active Substance: PANTOPRAZOLE SODIUM
     Dosage: UNK UNK, UNK
     Dates: start: 200704, end: 200704
  7. ZYVOX [Concomitant]
     Active Substance: LINEZOLID
     Dosage: 600 MG, BID
     Route: 042
     Dates: start: 200704, end: 200704
  8. RIFAMPIN. [Concomitant]
     Active Substance: RIFAMPIN
     Dosage: 300 MG, BID
     Dates: start: 200704, end: 200704
  9. FENTANYL. [Concomitant]
     Active Substance: FENTANYL
     Dosage: UNK UNK, UNK
     Route: 042
     Dates: start: 200704, end: 200704
  10. VANCOMYCIN [Concomitant]
     Active Substance: VANCOMYCIN
     Dosage: UNK UNK, UNK
     Dates: start: 20070414, end: 20070420
  11. CEFTRIAXONE. [Concomitant]
     Active Substance: CEFTRIAXONE
     Dosage: 1 GM, Q24H
     Dates: start: 20070306, end: 20070307
  12. PHYTONADIONE. [Concomitant]
     Active Substance: PHYTONADIONE
     Dosage: 10 MG, QD
     Dates: start: 200704, end: 200704
  13. ZYVOX [Concomitant]
     Active Substance: LINEZOLID
     Dosage: 600 MG, BID
     Route: 042
     Dates: start: 20070308, end: 20070312
  14. PROPOFOL. [Concomitant]
     Active Substance: PROPOFOL
     Dosage: UNK UNK, UNK
     Route: 042
     Dates: start: 200704, end: 200704
  15. CUBICIN [Suspect]
     Active Substance: DAPTOMYCIN
     Indication: THROMBOPHLEBITIS SEPTIC
     Dosage: 6 MG/KG, Q24H
     Route: 042
     Dates: start: 20070315, end: 20070412
  16. VANCOMYCIN [Concomitant]
     Active Substance: VANCOMYCIN
     Dosage: UNK UNK, UNK
     Route: 042
     Dates: start: 20070224, end: 20070304
  17. XIGRIS [Concomitant]
     Active Substance: DROTRECOGIN ALFA (ACTIVATED)
     Indication: SEPSIS
     Dosage: UNK UNK, X1
     Route: 042
     Dates: start: 20070225, end: 20070228
  18. MINOCYCLINE [Concomitant]
     Active Substance: MINOCYCLINE\MINOCYCLINE HYDROCHLORIDE
     Dosage: 100 MG, BID
     Dates: start: 20070312, end: 20070315

REACTIONS (13)
  - Cardiac valve abscess [Fatal]
  - Antimicrobial susceptibility test resistant [Fatal]
  - Multiple organ dysfunction syndrome [Fatal]
  - Cardiac valve vegetation [Fatal]
  - Sepsis syndrome [Fatal]
  - Pneumonia haemophilus [Recovered/Resolved]
  - Staphylococcal bacteraemia [Fatal]
  - Endocarditis [Fatal]
  - Haemorrhage intracranial [Recovered/Resolved]
  - Respiratory failure [Fatal]
  - Aortic valve incompetence [Fatal]
  - Acute kidney injury [Fatal]
  - Thrombocytopenia [Fatal]

NARRATIVE: CASE EVENT DATE: 200702
